FAERS Safety Report 8587173-4 (Version None)
Quarter: 2012Q3

REPORT INFORMATION
  Report Type: 
  Country: None (occurrence: None)
  Receive Date: 20120810
  Receipt Date: 20111219
  Transmission Date: 20120928
  Serious: No
  Sender: FDA-Public Use
  Company Number: US-ASTRAZENECA-2008UW21788

PATIENT
  Age: 80 Year
  Sex: Female
  Weight: 49.9 kg

DRUGS (4)
  1. ARIMIDEX [Suspect]
     Indication: BREAST CANCER
     Route: 048
     Dates: start: 20020802, end: 20030830
  2. SYNTHROID [Concomitant]
     Indication: THYROID DISORDER
  3. ATENOLOL [Concomitant]
     Indication: BLOOD PRESSURE ABNORMAL
  4. ASCORBIC ACID [Concomitant]

REACTIONS (2)
  - MYALGIA [None]
  - MYOPATHY [None]
